FAERS Safety Report 9462785 (Version 2)
Quarter: 2013Q3

REPORT INFORMATION
  Report Type: Report from Study
  Country: AU (occurrence: AU)
  Receive Date: 20130816
  Receipt Date: 20130822
  Transmission Date: 20140515
  Serious: Yes (Death)
  Sender: FDA-Public Use
  Company Number: PHHY2013AU088635

PATIENT
  Sex: Male
  Weight: 60 kg

DRUGS (1)
  1. ACLASTA [Suspect]
     Dosage: 5 MG
     Route: 042
     Dates: start: 20120313

REACTIONS (5)
  - Cholangitis [Fatal]
  - Jaundice [Fatal]
  - Abdominal pain [Fatal]
  - Abdominal adhesions [Fatal]
  - Liver function test abnormal [Unknown]
